FAERS Safety Report 7424150-0 (Version None)
Quarter: 2011Q2

REPORT INFORMATION
  Report Type: 
  Country: None (occurrence: None)
  Receive Date: 20110419
  Receipt Date: 20110413
  Transmission Date: 20111010
  Serious: Yes (Death, Other)
  Sender: FDA-Public Use
  Company Number: US-PFIZER INC-2011081982

PATIENT
  Age: 58 Year
  Sex: Female

DRUGS (3)
  1. ZYVOX [Suspect]
     Indication: EMPYEMA
  2. ZYVOX [Suspect]
     Indication: PNEUMONIA
     Dosage: UNK
     Route: 042
  3. ZYVOX [Suspect]
     Indication: STAPHYLOCOCCAL INFECTION

REACTIONS (2)
  - DEATH [None]
  - LACTIC ACIDOSIS [None]
